FAERS Safety Report 18096680 (Version 1)
Quarter: 2020Q3

REPORT INFORMATION
  Report Type: Spontaneous
  Country: HR (occurrence: HR)
  Receive Date: 20200731
  Receipt Date: 20200731
  Transmission Date: 20201103
  Serious: Yes (Other)
  Sender: FDA-Public Use
  Company Number: HR-TEVA-2020-HR-1807027

PATIENT
  Age: 74 Year
  Sex: Female

DRUGS (3)
  1. RISSET [Suspect]
     Active Substance: RISPERIDONE
     Dosage: 20 X 2 MG, 40 MG
     Route: 048
     Dates: start: 20200509, end: 20200509
  2. TEGRETOL XR [Suspect]
     Active Substance: CARBAMAZEPINE
     Dosage: 2 X 400 MG, 800 MG
     Route: 048
     Dates: start: 20200509, end: 20200509
  3. NORMABEL [Suspect]
     Active Substance: DIAZEPAM
     Dosage: 16 X 5 MG, 80 MG
     Route: 048
     Dates: start: 20200509, end: 20200509

REACTIONS (5)
  - Intentional overdose [Unknown]
  - Depressed level of consciousness [Unknown]
  - Somnolence [Unknown]
  - Suicide attempt [Unknown]
  - Sedation [Unknown]

NARRATIVE: CASE EVENT DATE: 20200509
